FAERS Safety Report 6388909-3 (Version None)
Quarter: 2009Q4

REPORT INFORMATION
  Report Type: 
  Country: None (occurrence: None)
  Receive Date: 20091001
  Receipt Date: 20090924
  Transmission Date: 20100525
  Serious: Yes (Hospitalization)
  Sender: FDA-Public Use
  Company Number: WAES 0907FRA00105

PATIENT
  Age: 51 Year
  Sex: Male

DRUGS (12)
  1. ZOLINZA [Suspect]
     Indication: LUNG NEOPLASM MALIGNANT
     Dosage: 400 MG/DAILY, PO
     Route: 048
     Dates: start: 20090629, end: 20090705
  2. ZOLINZA [Suspect]
     Indication: LUNG NEOPLASM MALIGNANT
     Dosage: 400 MG/DAILY, PO
     Route: 048
     Dates: start: 20090722, end: 20090728
  3. GEMCITABINE [Suspect]
     Indication: LUNG NEOPLASM MALIGNANT
     Dosage: 2380 MG/1X, IV
     Route: 042
     Dates: start: 20090701, end: 20090701
  4. GEMCITABINE [Suspect]
     Indication: LUNG NEOPLASM MALIGNANT
     Dosage: 2380 MG/1X, IV
     Route: 042
     Dates: start: 20090708, end: 20090708
  5. CISPLATIN [Suspect]
     Indication: LUNG NEOPLASM MALIGNANT
     Dosage: 143 MG/1X, IV
     Route: 042
     Dates: start: 20090701, end: 20090701
  6. CISPLATIN [Suspect]
     Indication: LUNG NEOPLASM MALIGNANT
     Dosage: 143 MG/1X, IV
     Route: 042
     Dates: start: 20090724, end: 20090724
  7. EMEND [Concomitant]
  8. ACETAMINOPHEN AND CODEINE PHOSPHATE [Concomitant]
  9. ALPRAZOLAM [Concomitant]
  10. METOCLOPRAMIDE HYDROCHLORIDE [Concomitant]
  11. CONDANAETRON [Concomitant]
  12. TINZAPARIN SODIUM [Concomitant]

REACTIONS (20)
  - ABDOMINAL PAIN [None]
  - ANAEMIA [None]
  - ASTHENIA [None]
  - CONSTIPATION [None]
  - DECREASED APPETITE [None]
  - DEEP VEIN THROMBOSIS [None]
  - DRUG TOLERANCE DECREASED [None]
  - GENERAL PHYSICAL HEALTH DETERIORATION [None]
  - HYPERMAGNESAEMIA [None]
  - HYPOCALCAEMIA [None]
  - HYPOGLYCAEMIA [None]
  - HYPOKALAEMIA [None]
  - HYPONATRAEMIA [None]
  - HYPOPHOSPHATAEMIA [None]
  - LEUKOPENIA [None]
  - NAUSEA [None]
  - NEUTROPENIA [None]
  - THROMBOCYTOPENIA [None]
  - VOMITING [None]
  - WEIGHT DECREASED [None]
